FAERS Safety Report 5905406-7 (Version None)
Quarter: 2008Q4

REPORT INFORMATION
  Report Type: 
  Country: None (occurrence: None)
  Receive Date: 20081001
  Receipt Date: 20080918
  Transmission Date: 20090506
  Serious: Yes (Death)
  Sender: FDA-Public Use
  Company Number: US-ELI_LILLY_AND_COMPANY-US200805002068

PATIENT
  Sex: Female
  Weight: 54.422 kg

DRUGS (5)
  1. HUMATROPE [Suspect]
     Indication: GROWTH HORMONE DEFICIENCY
     Dosage: 0.8 MG, DAILY (1/D)
     Route: 058
     Dates: start: 20010101
  2. LEVOXYL [Concomitant]
     Indication: HYPOTHYROIDISM
     Dates: start: 20020606
  3. HYDROCORTISONE [Concomitant]
     Indication: ADRENAL INSUFFICIENCY
     Dates: start: 20060307
  4. FLORINEF [Concomitant]
     Indication: ADRENAL INSUFFICIENCY
     Dosage: UNK, UNK
     Dates: start: 20020606
  5. VIVELLE-DOT [Concomitant]
     Indication: CONTRACEPTION
     Dates: start: 20010708

REACTIONS (1)
  - ADRENOCORTICAL INSUFFICIENCY ACUTE [None]
